FAERS Safety Report 12818641 (Version 4)
Quarter: 2016Q4

REPORT INFORMATION
  Report Type: Spontaneous
  Country: DE (occurrence: DE)
  Receive Date: 20161006
  Receipt Date: 20161130
  Transmission Date: 20170207
  Serious: Yes (Hospitalization, Other)
  Sender: FDA-Public Use
  Company Number: DE-009507513-1610DEU000190

PATIENT
  Age: 74 Year
  Sex: Male
  Weight: 75 kg

DRUGS (10)
  1. ALPRAZOLAM. [Concomitant]
     Active Substance: ALPRAZOLAM
     Indication: MENTAL DISORDER
     Dosage: UNK
  2. TIOBLIS 10 MG/20 MG [Suspect]
     Active Substance: ATORVASTATIN\EZETIMIBE
     Dosage: UNK
     Route: 048
     Dates: start: 201605, end: 20160909
  3. TIOBLIS 10 MG/20 MG [Suspect]
     Active Substance: ATORVASTATIN\EZETIMIBE
     Dosage: UNK
     Route: 048
     Dates: start: 2016
  4. LOSARTAN POTASSIUM. [Concomitant]
     Active Substance: LOSARTAN POTASSIUM
     Dosage: UNK
  5. MOCLOBEMIDE [Concomitant]
     Active Substance: MOCLOBEMIDE
     Indication: MENTAL DISORDER
     Dosage: UNK
  6. FLUANXOL [Concomitant]
     Active Substance: FLUPENTIXOL
     Indication: MENTAL DISORDER
     Dosage: UNK
  7. AVAMYS [Concomitant]
     Active Substance: FLUTICASONE FUROATE
     Dosage: UNK
  8. CLOPIDOGREL [Concomitant]
     Active Substance: CLOPIDOGREL BISULFATE
     Dosage: UNK
  9. PANTOPRAZOLE [Concomitant]
     Active Substance: PANTOPRAZOLE SODIUM
     Dosage: UNK
  10. CORVATON [Concomitant]
     Active Substance: MOLSIDOMINE
     Dosage: UNK

REACTIONS (1)
  - Neuroborreliosis [Recovered/Resolved]

NARRATIVE: CASE EVENT DATE: 201608
